FAERS Safety Report 5207531-5 (Version None)
Quarter: 2006Q4

REPORT INFORMATION
  Report Type: 
  Country: None (occurrence: None)
  Receive Date: 20061030
  Receipt Date: 20060719
  Transmission Date: 20070319
  Serious: No
  Sender: FDA-Public Use
  Company Number: 2006CT000635

PATIENT
  Age: 51 Year
  Sex: Female
  Weight: 81.1939 kg

DRUGS (17)
  1. VENTAVIS [Suspect]
     Indication: PULMONARY HYPERTENSION
     Dosage: 2.5 UG; 6XD; INH
     Route: 055
     Dates: start: 20060713, end: 20060725
  2. SILDENAFIL CITRATE [Suspect]
  3. CELLCEPT [Concomitant]
  4. METOCLOPRAMIDE [Concomitant]
  5. LASIX [Concomitant]
  6. VICODIN [Concomitant]
  7. POTASSIUM CHLORIDE [Concomitant]
  8. ALLEGRA [Concomitant]
  9. ENALAPRIL MALEATE [Concomitant]
  10. MEPRON [Concomitant]
  11. NEXIUM [Concomitant]
  12. TIAZAC [Concomitant]
  13. ELAVIL [Concomitant]
  14. MOTRIN [Concomitant]
  15. ZANTAC [Concomitant]
  16. LIDODERM [Concomitant]
  17. TRACLEER [Concomitant]

REACTIONS (7)
  - CHEST PAIN [None]
  - CHILLS [None]
  - MYALGIA [None]
  - NAUSEA [None]
  - PHOTOPHOBIA [None]
  - PYREXIA [None]
  - VOMITING [None]
